FAERS Safety Report 12099587 (Version 1)
Quarter: 2016Q1

REPORT INFORMATION
  Report Type: Report from Study
  Country: US (occurrence: US)
  Receive Date: 20160222
  Receipt Date: 20160222
  Transmission Date: 20160526
  Serious: Yes (Other)
  Sender: FDA-Public Use
  Company Number: US-GILEAD-2016-0199251

PATIENT
  Sex: Female

DRUGS (1)
  1. LEDIPASVIR/SOFOSBUVIR [Suspect]
     Active Substance: LEDIPASVIR\SOFOSBUVIR
     Indication: HEPATITIS C
     Dosage: 1 DF, QD
     Route: 048
     Dates: start: 201507

REACTIONS (8)
  - Amnesia [Unknown]
  - Unresponsive to stimuli [Not Recovered/Not Resolved]
  - Feeling abnormal [Unknown]
  - Visual impairment [Unknown]
  - Asthenia [Unknown]
  - Dementia [Unknown]
  - Fatigue [Unknown]
  - Hypoacusis [Unknown]
